FAERS Safety Report 23256487 (Version 2)
Quarter: 2023Q4

REPORT INFORMATION
  Report Type: Spontaneous
  Country: US (occurrence: US)
  Receive Date: 20231204
  Receipt Date: 20231220
  Transmission Date: 20240109
  Serious: No
  Sender: FDA-Public Use
  Company Number: US-AMNEAL PHARMACEUTICALS-2023-AMRX-02982

PATIENT
  Sex: Female
  Weight: 68.027 kg

DRUGS (1)
  1. ETHINYL ESTRADIOL\NORELGESTROMIN [Suspect]
     Active Substance: ETHINYL ESTRADIOL\NORELGESTROMIN
     Indication: Contraception
     Dosage: 150/35 MICROGRAM, CHANGE PATCH 1 X A WEEK
     Route: 062
     Dates: start: 20230813, end: 20230813

REACTIONS (2)
  - Product adhesion issue [Unknown]
  - No adverse event [Unknown]
